FAERS Safety Report 12246708 (Version 2)
Quarter: 2016Q2

REPORT INFORMATION
  Report Type: Spontaneous
  Country: BR (occurrence: BR)
  Receive Date: 20160407
  Receipt Date: 20160506
  Transmission Date: 20160815
  Serious: Yes (Other)
  Sender: FDA-Public Use
  Company Number: BR-BAYER-2016-062378

PATIENT
  Age: 72 Year
  Sex: Male

DRUGS (26)
  1. FENTANYL. [Concomitant]
     Active Substance: FENTANYL
     Indication: SEDATION
     Dosage: 1 DF, QD
     Route: 042
     Dates: start: 20160125, end: 20160125
  2. TRAMADOL HYDROCHLORIDE. [Concomitant]
     Active Substance: TRAMADOL HYDROCHLORIDE
     Indication: PAIN
     Dosage: 50 MG, QD
     Route: 048
     Dates: start: 20160119, end: 20160119
  3. BEROTEC [Concomitant]
     Active Substance: FENOTEROL HYDROBROMIDE
     Indication: WHEEZING
     Dosage: 1.25 ML, QD
     Route: 055
     Dates: start: 20160111, end: 20160111
  4. DIAZEPAM. [Concomitant]
     Active Substance: DIAZEPAM
     Indication: AGITATION
     Dosage: 10 MG, QD
     Route: 048
     Dates: start: 20160112, end: 20160112
  5. ATROVENT [Concomitant]
     Active Substance: IPRATROPIUM BROMIDE
     Indication: WHEEZING
     Dosage: 1 ML, QID
     Route: 055
     Dates: start: 20160114, end: 20160115
  6. BEROTEC [Concomitant]
     Active Substance: FENOTEROL HYDROBROMIDE
     Indication: WHEEZING
     Dosage: 1.5 ML, QD
     Route: 055
     Dates: start: 20160112, end: 20160113
  7. DIAZEPAM. [Concomitant]
     Active Substance: DIAZEPAM
     Indication: AGITATION
     Dosage: 10 MG, BID
     Route: 048
     Dates: start: 20160111, end: 20160111
  8. QUETIAPINE FUMARATE. [Concomitant]
     Active Substance: QUETIAPINE FUMARATE
     Indication: AGITATION
     Dosage: 50 MG, BID
     Route: 048
     Dates: start: 20160110, end: 20160112
  9. RED BLOOD CELLS [Concomitant]
     Active Substance: HUMAN RED BLOOD CELL
     Indication: ANAEMIA
     Route: 042
     Dates: start: 20160125, end: 20160125
  10. POTASSIUM CHLORIDE. [Concomitant]
     Active Substance: POTASSIUM CHLORIDE
     Indication: HYPOKALAEMIA
     Dosage: 20 ML, QD
     Route: 042
     Dates: start: 20160113, end: 20160113
  11. GLYCERIN. [Concomitant]
     Active Substance: GLYCERIN
     Indication: CONSTIPATION
     Dosage: 500 ML, ONCE
     Route: 054
     Dates: start: 20160123, end: 20160123
  12. SODIUM CHLORIDE. [Concomitant]
     Active Substance: SODIUM CHLORIDE
     Indication: HYPONATRAEMIA
     Dosage: 10 ML, UNK
     Route: 042
     Dates: start: 20160111, end: 20160113
  13. CLEXANE [Interacting]
     Active Substance: ENOXAPARIN SODIUM
     Indication: PROPHYLAXIS
     Dosage: 40 MG, BID
     Route: 058
     Dates: start: 20160110, end: 20160125
  14. TRAMADOL HYDROCHLORIDE. [Concomitant]
     Active Substance: TRAMADOL HYDROCHLORIDE
     Indication: PAIN
     Dosage: 50 MG, QID
     Route: 048
     Dates: start: 20160120, end: 20160125
  15. DIPYRONE [Concomitant]
     Active Substance: DIPYRONE
     Indication: PAIN
     Dosage: 1 DF, QD
     Route: 042
     Dates: start: 20160102, end: 20160201
  16. ATROVENT [Concomitant]
     Active Substance: IPRATROPIUM BROMIDE
     Indication: WHEEZING
     Dosage: 1 ML, QID
     Route: 055
     Dates: start: 20160117, end: 20160125
  17. PREDNISONE. [Concomitant]
     Active Substance: PREDNISONE
     Indication: PROPHYLAXIS
     Dosage: 40 MG, QD
     Route: 048
     Dates: start: 20160114, end: 20160116
  18. PREDNISONE. [Concomitant]
     Active Substance: PREDNISONE
     Indication: PROPHYLAXIS
     Dosage: 40 MG, QD
     Route: 048
     Dates: start: 20160118, end: 20160125
  19. ATROVENT [Concomitant]
     Active Substance: IPRATROPIUM BROMIDE
     Indication: WHEEZING
     Route: 055
     Dates: start: 20160111, end: 20160111
  20. ATROVENT [Concomitant]
     Active Substance: IPRATROPIUM BROMIDE
     Indication: WHEEZING
     Route: 055
     Dates: start: 20160112, end: 20160113
  21. ACETYLSALICYLIC ACID({=100 MG) [Suspect]
     Active Substance: ASPIRIN
     Indication: MYOCARDIAL ISCHAEMIA
     Dosage: 100 MG, QD
     Route: 048
     Dates: start: 20160112, end: 20160124
  22. CITALOPRAM [Interacting]
     Active Substance: CITALOPRAM HYDROBROMIDE
     Indication: AGITATION
     Route: 048
     Dates: start: 20160119, end: 20160125
  23. PREDNISONE. [Concomitant]
     Active Substance: PREDNISONE
     Indication: PROPHYLAXIS
     Dosage: 20 MG, QD
     Route: 048
     Dates: start: 20160112, end: 20160112
  24. DIPYRONE [Concomitant]
     Active Substance: DIPYRONE
     Indication: PAIN
     Dosage: 40 MG, UNK
     Route: 048
     Dates: start: 20160116, end: 20160203
  25. ATROVENT [Concomitant]
     Active Substance: IPRATROPIUM BROMIDE
     Indication: WHEEZING
     Dosage: 1 ML, TID
     Route: 055
     Dates: start: 20160116, end: 20160116
  26. BEROTEC [Concomitant]
     Active Substance: FENOTEROL HYDROBROMIDE
     Indication: WHEEZING
     Dosage: .25 ML, BID
     Route: 055
     Dates: start: 20160114, end: 20160114

REACTIONS (8)
  - Leukocytosis [None]
  - Labelled drug-drug interaction medication error [None]
  - Acute kidney injury [None]
  - Haemorrhagic anaemia [None]
  - Thrombocytopenia [None]
  - Upper gastrointestinal haemorrhage [Recovered/Resolved]
  - Cardiac failure [None]
  - Rectal ulcer [None]

NARRATIVE: CASE EVENT DATE: 201601
